FAERS Safety Report 10214631 (Version 3)
Quarter: 2014Q3

REPORT INFORMATION
  Report Type: Spontaneous
  Country: JP (occurrence: JP)
  Receive Date: 20140603
  Receipt Date: 20140702
  Transmission Date: 20150326
  Serious: Yes (Other)
  Sender: FDA-Public Use
  Company Number: JP-PFIZER INC-2014149223

PATIENT
  Age: 78 Year
  Sex: Male

DRUGS (3)
  1. BIOFERMIN [Concomitant]
     Active Substance: BACILLUS SUBTILIS\LACTOBACILLUS ACIDOPHILUS\STREPTOCOCCUS FAECAIS
     Dosage: UNK
     Route: 048
     Dates: start: 20140201
  2. URSO [Concomitant]
     Active Substance: URSODIOL
     Dosage: UNK
     Route: 048
     Dates: start: 20140201
  3. ZYVOX [Suspect]
     Active Substance: LINEZOLID
     Indication: SPONDYLITIS
     Dosage: 1200 MG, DAILY
     Route: 042
     Dates: start: 20140525, end: 20140531

REACTIONS (2)
  - Renal impairment [Recovering/Resolving]
  - Blood potassium increased [Recovered/Resolved]

NARRATIVE: CASE EVENT DATE: 20140528
